FAERS Safety Report 7941033-8 (Version None)
Quarter: 2011Q4

REPORT INFORMATION
  Report Type: 
  Country: None (occurrence: None)
  Receive Date: 20111122
  Receipt Date: 20111110
  Transmission Date: 20120403
  Serious: Yes (Death, Life-Threatening)
  Sender: FDA-Public Use
  Company Number: 2011S1000360

PATIENT
  Age: 69 Year
  Sex: Male

DRUGS (3)
  1. INOMAX [Suspect]
     Indication: CHRONIC LEFT VENTRICULAR FAILURE
     Dosage: 80;40;5 PPM, INH
     Route: 055
     Dates: start: 20111102
  2. INOMAX [Suspect]
     Indication: CHRONIC LEFT VENTRICULAR FAILURE
     Dosage: 80;40;5 PPM, INH
     Route: 055
     Dates: end: 20111106
  3. INOMAX [Suspect]
     Indication: CHRONIC LEFT VENTRICULAR FAILURE
     Dosage: 80;40;5 PPM, INH
     Route: 055
     Dates: start: 20111107, end: 20111108

REACTIONS (1)
  - CARDIAC ARREST [None]
